FAERS Safety Report 8266097-6 (Version None)
Quarter: 2012Q2

REPORT INFORMATION
  Report Type: 
  Country: None (occurrence: None)
  Receive Date: 20120406
  Receipt Date: 20120402
  Transmission Date: 20120825
  Serious: Yes (Other)
  Sender: FDA-Public Use
  Company Number: US-PFIZER INC-2012083941

PATIENT
  Sex: Female

DRUGS (1)
  1. NEURONTIN [Suspect]
     Indication: CONVULSION
     Dosage: UNK

REACTIONS (11)
  - DIARRHOEA [None]
  - DECREASED APPETITE [None]
  - LETHARGY [None]
  - DIABETES MELLITUS INADEQUATE CONTROL [None]
  - HYPERTENSION [None]
  - HEADACHE [None]
  - SOMNOLENCE [None]
  - VISION BLURRED [None]
  - STRESS [None]
  - FLATULENCE [None]
  - DIZZINESS [None]
